FAERS Safety Report 6627867-0 (Version None)
Quarter: 2010Q1

REPORT INFORMATION
  Report Type: 
  Country: None (occurrence: None)
  Receive Date: 20100311
  Receipt Date: 20090124
  Transmission Date: 20100710
  Serious: No
  Sender: FDA-Public Use
  Company Number: A0765572A

PATIENT
  Age: 38 Year
  Sex: Male

DRUGS (1)
  1. NICORETTE [Suspect]
     Indication: DRUG USE FOR UNKNOWN INDICATION

REACTIONS (3)
  - COUGH [None]
  - OROPHARYNGEAL PAIN [None]
  - THROAT IRRITATION [None]
